FAERS Safety Report 9051177 (Version 1)
Quarter: 2013Q1

REPORT INFORMATION
  Report Type: Spontaneous
  Country: IT (occurrence: IT)
  Receive Date: 20130206
  Receipt Date: 20130206
  Transmission Date: 20140127
  Serious: Yes (Other)
  Sender: FDA-Public Use
  Company Number: IT-BRISTOL-MYERS SQUIBB COMPANY-17329046

PATIENT
  Age: 54 Year
  Sex: Female

DRUGS (8)
  1. METFORMIN HCL [Suspect]
     Route: 048
     Dates: start: 20111116, end: 20121115
  2. AULIN [Suspect]
     Route: 048
     Dates: start: 20121114, end: 20121114
  3. SIMVASTATIN [Suspect]
     Route: 048
     Dates: start: 20111116, end: 20121115
  4. PERINDOPRIL [Suspect]
     Route: 048
     Dates: start: 20111116, end: 20121115
  5. CARDICOR [Concomitant]
  6. ACTOS [Concomitant]
  7. MODURETIC [Concomitant]
     Dosage: 1DF = 5MG+50MG
  8. AGGRENOX [Concomitant]
     Dosage: 1DF = 200MG+25MG

REACTIONS (1)
  - Hypertransaminasaemia [Unknown]
